FAERS Safety Report 5027960-2 (Version None)
Quarter: 2006Q2

REPORT INFORMATION
  Report Type: 
  Country: None (occurrence: None)
  Receive Date: 20060612
  Receipt Date: 20060602
  Transmission Date: 20061013
  Serious: Yes (Other)
  Sender: FDA-Public Use
  Company Number: GB-2006-006453

PATIENT
  Sex: Male

DRUGS (1)
  1. ULTRAVIST [Suspect]
     Dosage: 1 DOSE

REACTIONS (2)
  - APHASIA [None]
  - NERVOUS SYSTEM DISORDER [None]
